FAERS Safety Report 12333086 (Version 4)
Quarter: 2020Q2

REPORT INFORMATION
  Report Type: Spontaneous
  Country: US (occurrence: US)
  Receive Date: 20160504
  Receipt Date: 20200505
  Transmission Date: 20200713
  Serious: No
  Sender: FDA-Public Use
  Company Number: US-ROCHE-1718645

PATIENT
  Sex: Male

DRUGS (7)
  1. ESBRIET [Suspect]
     Active Substance: PIRFENIDONE
     Route: 048
     Dates: start: 20160323
  2. SIMVASTATIN. [Concomitant]
     Active Substance: SIMVASTATIN
  3. METFORMIN HYDROCHLORIDE. [Concomitant]
     Active Substance: METFORMIN HYDROCHLORIDE
     Route: 065
  4. LEXAPRO [Concomitant]
     Active Substance: ESCITALOPRAM OXALATE
  5. ESBRIET [Suspect]
     Active Substance: PIRFENIDONE
     Indication: IDIOPATHIC PULMONARY FIBROSIS
     Route: 065
     Dates: start: 20160215
  6. CITALOPRAM HYDROBROMIDE. [Concomitant]
     Active Substance: CITALOPRAM HYDROBROMIDE
  7. PRILOSEC [Concomitant]
     Active Substance: OMEPRAZOLE MAGNESIUM

REACTIONS (2)
  - Abdominal discomfort [Unknown]
  - Fatigue [Not Recovered/Not Resolved]
